FAERS Safety Report 5128680-6 (Version None)
Quarter: 2006Q4

REPORT INFORMATION
  Report Type: 
  Country: None (occurrence: None)
  Receive Date: 20061017
  Receipt Date: 20061010
  Transmission Date: 20070319
  Serious: Yes (Hospitalization)
  Sender: FDA-Public Use
  Company Number: 2006CG01657

PATIENT
  Age: 50 Year
  Sex: Female

DRUGS (5)
  1. MARCAINE [Suspect]
     Indication: LOCAL ANAESTHESIA
     Route: 053
     Dates: start: 20061008, end: 20061008
  2. NAROPIN [Suspect]
     Indication: LOCAL ANAESTHESIA
     Route: 053
     Dates: start: 20061008, end: 20061008
  3. ACETAMINOPHEN [Concomitant]
     Indication: POSTOPERATIVE ANALGESIA
     Dates: start: 20061008
  4. MORPHINE SULFATE [Concomitant]
     Indication: POSTOPERATIVE ANALGESIA
     Dates: start: 20061008
  5. ACUPAN [Concomitant]
     Indication: POSTOPERATIVE ANALGESIA
     Dates: start: 20061008

REACTIONS (1)
  - PANCREATITIS ACUTE [None]
